FAERS Safety Report 26130359 (Version 1)
Quarter: 2025Q4

REPORT INFORMATION
  Report Type: Spontaneous
  Country: US (occurrence: None)
  Receive Date: 20251205
  Receipt Date: 20251205
  Transmission Date: 20260118
  Serious: Yes (unspecified)
  Sender: FDA-CTU
  Company Number: None

PATIENT
  Sex: Female

DRUGS (2)
  1. CARBOCAINE [Suspect]
     Active Substance: MEPIVACAINE HYDROCHLORIDE
  2. SEPTOCAINE [Suspect]
     Active Substance: ARTICAINE HYDROCHLORIDE\EPINEPHRINE BITARTRATE

REACTIONS (13)
  - Oxygen saturation decreased [None]
  - Swelling face [None]
  - Flushing [None]
  - Facial paralysis [None]
  - Tinnitus [None]
  - Chest pain [None]
  - Chills [None]
  - Hypopnoea [None]
  - Chromaturia [None]
  - Ocular discomfort [None]
  - Visual impairment [None]
  - Musculoskeletal stiffness [None]
  - Methaemoglobinaemia [None]

NARRATIVE: CASE EVENT DATE: 20251021
